FAERS Safety Report 21790607 (Version 1)
Quarter: 2022Q4

REPORT INFORMATION
  Report Type: Report from Study
  Country: US (occurrence: US)
  Receive Date: 20221228
  Receipt Date: 20221228
  Transmission Date: 20230113
  Serious: No
  Sender: FDA-Public Use
  Company Number: US-CLOVIS ONCOLOGY-CLO-2022-000510

PATIENT
  Sex: Female

DRUGS (3)
  1. RUBRACA [Suspect]
     Active Substance: RUCAPARIB CAMSYLATE
     Indication: Ovarian cancer
     Dosage: 600 MILLIGRAM, BID
     Route: 048
  2. RUBRACA [Suspect]
     Active Substance: RUCAPARIB CAMSYLATE
     Dosage: 300 MG AM/600 MG PM
     Route: 048
  3. RUBRACA [Suspect]
     Active Substance: RUCAPARIB CAMSYLATE
     Dosage: 1 PILL IN THE MORNING AND 1 PILL IN THE EVENING

REACTIONS (18)
  - Alopecia [Unknown]
  - Full blood count abnormal [Unknown]
  - Pain in extremity [Unknown]
  - Hypotension [Unknown]
  - Constipation [Unknown]
  - Dehydration [Unknown]
  - Abdominal pain [Unknown]
  - Abdominal pain upper [Unknown]
  - Diarrhoea [Recovering/Resolving]
  - White blood cell count decreased [Unknown]
  - Nausea [Unknown]
  - Vomiting [Not Recovered/Not Resolved]
  - Fatigue [Not Recovered/Not Resolved]
  - Asthenia [Not Recovered/Not Resolved]
  - Faeces soft [Not Recovered/Not Resolved]
  - Dizziness [Unknown]
  - Anaemia [Recovered/Resolved]
  - Intentional underdose [Unknown]
